FAERS Safety Report 4399792-X (Version None)
Quarter: 2004Q3

REPORT INFORMATION
  Report Type: 
  Country: None (occurrence: None)
  Receive Date: 20040714
  Receipt Date: 20040702
  Transmission Date: 20050211
  Serious: Yes (Hospitalization, Other)
  Sender: FDA-Public Use
  Company Number: 2004045028

PATIENT
  Age: 74 Year
  Sex: Male

DRUGS (3)
  1. CARDURA [Suspect]
     Indication: BENIGN PROSTATIC HYPERPLASIA
     Dosage: 2 MG (2 MG, 1 IN 1 D), ORAL
     Route: 048
     Dates: start: 19990830
  2. MODURETIC ^MSD^ AMILORIDE HYDROCHLORIDE, HYDROCHLOROTHIAZIDE) [Concomitant]
  3. AMLODIPINE [Concomitant]

REACTIONS (4)
  - CHOLELITHIASIS [None]
  - HAEMODIALYSIS [None]
  - RENAL DISORDER [None]
  - RENAL FAILURE [None]
